FAERS Safety Report 7442968-5 (Version None)
Quarter: 2011Q2

REPORT INFORMATION
  Report Type: 
  Country: None (occurrence: None)
  Receive Date: 20110428
  Receipt Date: 20110422
  Transmission Date: 20111010
  Serious: Yes (Hospitalization)
  Sender: FDA-Public Use
  Company Number: US-MERCK-1104USA01062

PATIENT
  Age: 22 Year
  Sex: Male

DRUGS (4)
  1. ADVAIR DISKUS 100/50 [Concomitant]
     Route: 065
  2. SINGULAIR [Suspect]
     Indication: ASTHMA
     Route: 048
     Dates: start: 20050101, end: 20110401
  3. ALBUTEROL [Concomitant]
     Route: 065
  4. XOPENEX [Concomitant]
     Route: 065

REACTIONS (1)
  - HEPATITIS TOXIC [None]
